FAERS Safety Report 13168671 (Version 4)
Quarter: 2017Q3

REPORT INFORMATION
  Report Type: Report from Study
  Country: None (occurrence: US)
  Receive Date: 20170131
  Receipt Date: 20170902
  Transmission Date: 20171127
  Serious: Yes (Hospitalization, Other)
  Sender: FDA-Public Use
  Company Number: US-ABBVIE-17K-163-1849780-00

PATIENT
  Age: 55 Year
  Sex: Male
  Weight: 77.63 kg

DRUGS (2)
  1. HUMIRA [Suspect]
     Active Substance: ADALIMUMAB
     Route: 058
     Dates: start: 201607
  2. HUMIRA [Suspect]
     Active Substance: ADALIMUMAB
     Indication: RHEUMATOID ARTHRITIS
     Route: 058
     Dates: start: 2015, end: 201606

REACTIONS (4)
  - Infection [Recovered/Resolved]
  - Diabetic foot [Recovering/Resolving]
  - Skin ulcer [Recovered/Resolved]
  - Diabetic complication [Recovering/Resolving]

NARRATIVE: CASE EVENT DATE: 201606
